FAERS Safety Report 11106011 (Version 1)
Quarter: 2015Q2

REPORT INFORMATION
  Report Type: Spontaneous
  Country: US (occurrence: None)
  Receive Date: 20150508
  Receipt Date: 20150508
  Transmission Date: 20150821
  Serious: Yes (Life-Threatening, Hospitalization)
  Sender: FDA-Public Use
  Company Number: 2015/043

PATIENT
  Age: 34 Year
  Sex: Male
  Weight: 105 kg

DRUGS (14)
  1. TACROLIMUS. [Concomitant]
     Active Substance: TACROLIMUS
  2. PANTOPRAZOLE [Concomitant]
     Active Substance: PANTOPRAZOLE SODIUM
  3. CARVEDILOL. [Concomitant]
     Active Substance: CARVEDILOL
  4. DAPSONE. [Concomitant]
     Active Substance: DAPSONE
  5. BUPROPION [Concomitant]
     Active Substance: BUPROPION
  6. LEVOFLOXACIN. [Concomitant]
     Active Substance: LEVOFLOXACIN
  7. METFORMIN [Concomitant]
     Active Substance: METFORMIN HYDROCHLORIDE
  8. ACYCLOVIR. [Concomitant]
     Active Substance: ACYCLOVIR
  9. AMLODIPINE [Suspect]
     Active Substance: AMLODIPINE BESYLATE
     Indication: HYPERTENSION
     Route: 048
     Dates: start: 20140310, end: 20140322
  10. CASPOFUNGIN [Concomitant]
     Active Substance: CASPOFUNGIN
  11. METHYLPREDNISOLONE. [Concomitant]
     Active Substance: METHYLPREDNISOLONE
  12. BUDESONIDE. [Concomitant]
     Active Substance: BUDESONIDE
  13. INSULIN LISPRO [Concomitant]
     Active Substance: INSULIN LISPRO
  14. INSULIN DETEMIR [Concomitant]
     Active Substance: INSULIN DETEMIR

REACTIONS (4)
  - Hepatotoxicity [None]
  - Hepatocellular injury [None]
  - Alanine aminotransferase increased [None]
  - Aspartate aminotransferase increased [None]
